FAERS Safety Report 8360484-3 (Version None)
Quarter: 2012Q2

REPORT INFORMATION
  Report Type: 
  Country: None (occurrence: None)
  Receive Date: 20120515
  Receipt Date: 20120501
  Transmission Date: 20120825
  Serious: Yes (Other)
  Sender: FDA-Public Use
  Company Number: ES-JNJFOC-20120503383

PATIENT

DRUGS (1)
  1. INFLIXIMAB, RECOMBINANT [Suspect]
     Indication: POUCHITIS
     Dosage: DOSING: 0, 2, 6 AND 8 WEEK INFUSION
     Route: 042

REACTIONS (1)
  - LUPUS-LIKE SYNDROME [None]
